FAERS Safety Report 20393258 (Version 13)
Quarter: 2023Q4

REPORT INFORMATION
  Report Type: Spontaneous
  Country: US (occurrence: US)
  Receive Date: 20220128
  Receipt Date: 20231201
  Transmission Date: 20240109
  Serious: No
  Sender: FDA-Public Use
  Company Number: US-KARYOPHARM-2022KPT000062

PATIENT

DRUGS (12)
  1. XPOVIO [Suspect]
     Active Substance: SELINEXOR
     Indication: Plasma cell myeloma
     Dosage: 60 MG, WEEKLY
     Route: 048
     Dates: start: 20211201, end: 202205
  2. XPOVIO [Suspect]
     Active Substance: SELINEXOR
     Dosage: 60 MG, WEEKLY
     Route: 048
     Dates: start: 2022
  3. XPOVIO [Suspect]
     Active Substance: SELINEXOR
     Dosage: 60 MG, WEEKLY
     Route: 048
  4. DEXAMETHASONE [Concomitant]
     Active Substance: DEXAMETHASONE
  5. DITROPAN [Concomitant]
     Active Substance: OXYBUTYNIN CHLORIDE
  6. FAMOTIDINE [Concomitant]
     Active Substance: FAMOTIDINE
  7. NINLARO [Concomitant]
     Active Substance: IXAZOMIB CITRATE
  8. OLANZAPINE [Concomitant]
     Active Substance: OLANZAPINE
  9. POMALYST [Concomitant]
     Active Substance: POMALIDOMIDE
     Dosage: 4 MG QD FOR 3 WEEKS ON, 1 WEEK OFF
  10. ROSUVASTATIN [Concomitant]
     Active Substance: ROSUVASTATIN
  11. VALACYCLOVIR [Concomitant]
     Active Substance: VALACYCLOVIR HYDROCHLORIDE
  12. ZOFRAN [Concomitant]
     Active Substance: ONDANSETRON HYDROCHLORIDE

REACTIONS (7)
  - Insomnia [Unknown]
  - Muscle twitching [Recovering/Resolving]
  - Influenza like illness [Not Recovered/Not Resolved]
  - Nausea [Not Recovered/Not Resolved]
  - Constipation [Unknown]
  - Product dose omission issue [Unknown]
  - Drug ineffective [Not Recovered/Not Resolved]

NARRATIVE: CASE EVENT DATE: 20220101
